FAERS Safety Report 6688564-9 (Version None)
Quarter: 2010Q2

REPORT INFORMATION
  Report Type: 
  Country: None (occurrence: None)
  Receive Date: 20100420
  Receipt Date: 20100413
  Transmission Date: 20101027
  Serious: Yes (Hospitalization)
  Sender: FDA-Public Use
  Company Number: CG-MERCK-1004USA02152

PATIENT
  Age: 31 Year
  Sex: Male
  Weight: 71 kg

DRUGS (1)
  1. STROMECTOL [Suspect]
     Indication: ONCHOCERCIASIS
     Route: 065
     Dates: start: 20100128, end: 20100128

REACTIONS (7)
  - ASTHENIA [None]
  - BLOOD PRESSURE ABNORMAL [None]
  - CONJUNCTIVAL HAEMORRHAGE [None]
  - DEPRESSED LEVEL OF CONSCIOUSNESS [None]
  - ENCEPHALOPATHY [None]
  - HEADACHE [None]
  - PYREXIA [None]
